FAERS Safety Report 10748702 (Version 1)
Quarter: 2015Q1

REPORT INFORMATION
  Report Type: Spontaneous
  Country: GB (occurrence: GB)
  Receive Date: 20150129
  Receipt Date: 20150129
  Transmission Date: 20150721
  Serious: Yes (Hospitalization)
  Sender: FDA-Public Use
  Company Number: PHHY2015GB008784

PATIENT
  Age: 59 Year
  Sex: Female

DRUGS (3)
  1. CYCLOPHOSPHAMIDE. [Concomitant]
     Active Substance: CYCLOPHOSPHAMIDE
     Indication: PLASMA CELL MYELOMA
     Route: 065
  2. DEXAMETHASONE. [Suspect]
     Active Substance: DEXAMETHASONE
     Indication: PLASMA CELL MYELOMA
     Route: 065
  3. THALIDOMIDE [Concomitant]
     Active Substance: THALIDOMIDE
     Indication: PLASMA CELL MYELOMA
     Route: 065

REACTIONS (14)
  - Diarrhoea [Recovering/Resolving]
  - Abdominal distension [Recovering/Resolving]
  - Abdominal tenderness [Recovering/Resolving]
  - Constipation [Recovering/Resolving]
  - Vomiting [Recovering/Resolving]
  - Abdominal pain upper [Recovering/Resolving]
  - Decreased appetite [Recovering/Resolving]
  - Eosinophilia [Recovering/Resolving]
  - Malaise [Recovering/Resolving]
  - Strongyloidiasis [Recovering/Resolving]
  - Abdominal pain [Recovering/Resolving]
  - Small intestinal obstruction [Recovering/Resolving]
  - Gastrointestinal sounds abnormal [Recovering/Resolving]
  - Flatulence [Recovering/Resolving]
